FAERS Safety Report 17049741 (Version 1)
Quarter: 2019Q4

REPORT INFORMATION
  Report Type: Spontaneous
  Country: PT (occurrence: PT)
  Receive Date: 20191119
  Receipt Date: 20191119
  Transmission Date: 20200122
  Serious: Yes (Other)
  Sender: FDA-Public Use
  Company Number: PT-MYLANLABS-2019M1110755

PATIENT
  Age: 38 Year
  Sex: Female

DRUGS (6)
  1. DOCETAXEL. [Suspect]
     Active Substance: DOCETAXEL
     Indication: INFLAMMATORY CARCINOMA OF THE BREAST
     Dosage: UNK
     Dates: start: 201611
  2. CISPLATIN. [Suspect]
     Active Substance: CISPLATIN
     Indication: PERICARDIAL EFFUSION
     Dosage: 30 MILLIGRAM (3 CONSECUTIVE ADMINISTRATIONS)
     Route: 032
  3. CAPECITABINE. [Suspect]
     Active Substance: CAPECITABINE
     Indication: INFLAMMATORY CARCINOMA OF THE BREAST
     Dosage: UNK
  4. TRASTUZUMAB. [Suspect]
     Active Substance: TRASTUZUMAB
     Indication: INFLAMMATORY CARCINOMA OF THE BREAST
     Dosage: UNK
     Dates: start: 201611
  5. PERTUZUMAB. [Suspect]
     Active Substance: PERTUZUMAB
     Indication: INFLAMMATORY CARCINOMA OF THE BREAST
     Dosage: UNK
     Dates: start: 201611
  6. LAPATINIB [Suspect]
     Active Substance: LAPATINIB
     Indication: INFLAMMATORY CARCINOMA OF THE BREAST
     Dosage: UNK

REACTIONS (7)
  - Ascites [Unknown]
  - Orthopnoea [Unknown]
  - Dyspnoea at rest [Unknown]
  - Hypoxia [Unknown]
  - Pericardial effusion [Recovering/Resolving]
  - Drug intolerance [Unknown]
  - Off label use [Unknown]

NARRATIVE: CASE EVENT DATE: 201707
